FAERS Safety Report 16853168 (Version 1)
Quarter: 2019Q3

REPORT INFORMATION
  Report Type: Spontaneous
  Country: US (occurrence: US)
  Receive Date: 20190804
  Receipt Date: 20190804
  Transmission Date: 20191005
  Serious: No
  Sender: FDA-Public Use
  Company Number: None

PATIENT
  Age: 64 Year
  Sex: Male

DRUGS (1)
  1. GLATIRAMER 40MG PFS INJ  (12/BOX) [Suspect]
     Active Substance: GLATIRAMER
     Dosage: OTHER
     Route: 058
     Dates: start: 20090801

REACTIONS (3)
  - Rash [None]
  - Tenderness [None]
  - Injection site rash [None]

NARRATIVE: CASE EVENT DATE: 20190804
